FAERS Safety Report 7621594-9 (Version None)
Quarter: 2011Q3

REPORT INFORMATION
  Report Type: 
  Country: None (occurrence: None)
  Receive Date: 20110719
  Receipt Date: 20110426
  Transmission Date: 20111222
  Serious: Yes (Other)
  Sender: FDA-Public Use
  Company Number: PHEH2011US00509

PATIENT
  Sex: Male

DRUGS (1)
  1. GILENYA [Suspect]
     Dosage: UNK UKN, UNK

REACTIONS (9)
  - INFECTIOUS PERITONITIS [None]
  - LARGE INTESTINE PERFORATION [None]
  - DEPRESSION [None]
  - SEXUAL DYSFUNCTION [None]
  - LYMPHOEDEMA [None]
  - PAIN [None]
  - DEFORMITY [None]
  - DECREASED INTEREST [None]
  - INJURY [None]
